FAERS Safety Report 5503272-5 (Version None)
Quarter: 2007Q4

REPORT INFORMATION
  Report Type: 
  Country: None (occurrence: None)
  Receive Date: 20071031
  Receipt Date: 20071022
  Transmission Date: 20080405
  Serious: Yes (Other)
  Sender: FDA-Public Use
  Company Number: JP-PFIZER INC-2007089116

PATIENT
  Age: 63 Year
  Sex: Male

DRUGS (7)
  1. ZITHROMAX [Suspect]
     Route: 048
  2. SAWADOL L [Concomitant]
  3. ONON [Concomitant]
     Route: 048
  4. BEZAFIBRATE [Concomitant]
     Route: 048
  5. LISINOPRIL [Concomitant]
     Route: 048
  6. NORVASC [Concomitant]
     Route: 048
  7. RIZABEN [Concomitant]

REACTIONS (3)
  - DYSSTASIA [None]
  - MUSCULOSKELETAL STIFFNESS [None]
  - MYALGIA [None]
